FAERS Safety Report 14316355 (Version 1)
Quarter: 2017Q4

REPORT INFORMATION
  Report Type: Report from Study
  Country: None (occurrence: US)
  Receive Date: 20171222
  Receipt Date: 20171222
  Transmission Date: 20180321
  Serious: Yes (Hospitalization, Other)
  Sender: FDA-Public Use
  Company Number: US-ABBVIE-17K-163-2186816-00

PATIENT
  Age: 53 Year
  Sex: Male
  Weight: 88.53 kg

DRUGS (2)
  1. HUMIRA [Suspect]
     Active Substance: ADALIMUMAB
     Indication: PSORIATIC ARTHROPATHY
  2. HUMIRA [Suspect]
     Active Substance: ADALIMUMAB
     Indication: PSORIASIS
     Route: 058
     Dates: start: 2007

REACTIONS (10)
  - Staphylococcal skin infection [Recovered/Resolved]
  - Myocardial infarction [Recovered/Resolved]
  - Feeling jittery [Recovered/Resolved]
  - CSF pressure increased [Recovered/Resolved]
  - Balance disorder [Recovered/Resolved]
  - Disorganised speech [Recovered/Resolved]
  - Staphylococcal skin infection [Recovered/Resolved]
  - Photosensitivity reaction [Unknown]
  - Basosquamous carcinoma [Not Recovered/Not Resolved]
  - Fall [Recovered/Resolved]

NARRATIVE: CASE EVENT DATE: 2007
